FAERS Safety Report 5634797-X (Version None)
Quarter: 2008Q1

REPORT INFORMATION
  Report Type: 
  Country: None (occurrence: None)
  Receive Date: 20080222
  Receipt Date: 20080213
  Transmission Date: 20080703
  Serious: Yes (Other)
  Sender: FDA-Public Use
  Company Number: JP-MERCK-0802USA03231

PATIENT
  Age: 26 Year
  Sex: Female

DRUGS (2)
  1. DECADRON [Suspect]
     Indication: FOETAL CARDIAC DISORDER
     Route: 048
  2. DECADRON [Suspect]
     Route: 048

REACTIONS (2)
  - AMNIOTIC FLUID VOLUME DECREASED [None]
  - DRUG EXPOSURE DURING PREGNANCY [None]
